FAERS Safety Report 6819406-6 (Version None)
Quarter: 2010Q3

REPORT INFORMATION
  Report Type: 
  Country: None (occurrence: None)
  Receive Date: 20100707
  Receipt Date: 20100625
  Transmission Date: 20110219
  Serious: Yes (Hospitalization, Other)
  Sender: FDA-Public Use
  Company Number: US-PFIZER INC-2010069196

PATIENT
  Sex: Male

DRUGS (2)
  1. SUTENT [Suspect]
     Indication: METASTATIC RENAL CELL CARCINOMA
     Dosage: 50 MG, 1X/DAY X 28 DAYS EVERY 42 DAYS
     Dates: start: 20100511
  2. ASPIRIN [Concomitant]

REACTIONS (8)
  - ASTHENIA [None]
  - COUGH [None]
  - DYSPNOEA [None]
  - ERUCTATION [None]
  - PALMAR-PLANTAR ERYTHRODYSAESTHESIA SYNDROME [None]
  - SPEECH DISORDER [None]
  - SWOLLEN TONGUE [None]
  - YELLOW SKIN [None]
